FAERS Safety Report 4561152-6 (Version None)
Quarter: 2005Q1

REPORT INFORMATION
  Report Type: 
  Country: None (occurrence: None)
  Receive Date: 20050121
  Receipt Date: 20050110
  Transmission Date: 20050727
  Serious: Yes (Hospitalization)
  Sender: FDA-Public Use
  Company Number: 230120K05USA

PATIENT
  Age: 58 Year
  Sex: Female

DRUGS (1)
  1. REBIF [Suspect]
     Indication: MULTIPLE SCLEROSIS
     Dosage: 44 MCG, 3 IN 1 2 WEEKS, SUBCUTANEOUS
     Route: 058
     Dates: start: 20031011, end: 20041101

REACTIONS (6)
  - ASTHENIA [None]
  - CONTUSION [None]
  - DECUBITUS ULCER [None]
  - LOWER LIMB FRACTURE [None]
  - MYOCARDIAL INFARCTION [None]
  - SKIN NECROSIS [None]
